FAERS Safety Report 19085932 (Version 2)
Quarter: 2021Q3

REPORT INFORMATION
  Report Type: Spontaneous
  Country: US (occurrence: US)
  Receive Date: 20210402
  Receipt Date: 20210705
  Transmission Date: 20211014
  Serious: Yes (Other)
  Sender: FDA-Public Use
  Company Number: US-ROCHE-2803746

PATIENT
  Sex: Female

DRUGS (8)
  1. OCREVUS [Suspect]
     Active Substance: OCRELIZUMAB
     Indication: SECONDARY PROGRESSIVE MULTIPLE SCLEROSIS
     Dosage: ONGOING NO, ON HOLD
     Route: 042
     Dates: start: 20181214
  2. MS CONTIN [Concomitant]
     Active Substance: MORPHINE SULFATE
  3. OCREVUS [Suspect]
     Active Substance: OCRELIZUMAB
     Dosage: CYCLE 2 + 3 ON 19/JUL/2019 AND 29/JAN/2020
     Route: 042
     Dates: start: 20190116
  4. BACLOFEN. [Concomitant]
     Active Substance: BACLOFEN
  5. PROVIGIL [Concomitant]
     Active Substance: MODAFINIL
  6. SIMVASTATIN. [Concomitant]
     Active Substance: SIMVASTATIN
  7. CYMBALTA [Concomitant]
     Active Substance: DULOXETINE HYDROCHLORIDE
  8. AMPYRA [Concomitant]
     Active Substance: DALFAMPRIDINE

REACTIONS (1)
  - Breast cancer [Unknown]
